FAERS Safety Report 25463733 (Version 1)
Quarter: 2025Q2

REPORT INFORMATION
  Report Type: Spontaneous
  Country: US (occurrence: US)
  Receive Date: 20250621
  Receipt Date: 20250621
  Transmission Date: 20250717
  Serious: No
  Sender: ALEXION PHARMACEUTICALS
  Company Number: US-ASTRAZENECA-202506USA016159US

PATIENT

DRUGS (2)
  1. CRESTOR [Suspect]
     Active Substance: ROSUVASTATIN CALCIUM
     Route: 065
  2. PRAVASTATIN [Suspect]
     Active Substance: PRAVASTATIN

REACTIONS (4)
  - Pain [Unknown]
  - Muscular weakness [Unknown]
  - Adverse drug reaction [Unknown]
  - No adverse event [Unknown]
